FAERS Safety Report 16379159 (Version 2)
Quarter: 2019Q4

REPORT INFORMATION
  Report Type: Report from Study
  Country: US (occurrence: US)
  Receive Date: 20190531
  Receipt Date: 20191206
  Transmission Date: 20200122
  Serious: Yes (Other)
  Sender: FDA-Public Use
  Company Number: US-BIOGEN-2019BI00744182

PATIENT
  Age: 35 Year
  Sex: Female

DRUGS (1)
  1. TYSABRI [Suspect]
     Active Substance: NATALIZUMAB
     Indication: MULTIPLE SCLEROSIS
     Route: 065

REACTIONS (5)
  - Infection [Not Recovered/Not Resolved]
  - Multiple sclerosis [Recovered/Resolved]
  - Deep vein thrombosis [Not Recovered/Not Resolved]
  - Neuralgia [Unknown]
  - Nerve injury [Unknown]

NARRATIVE: CASE EVENT DATE: 20190517
